FAERS Safety Report 7406589-2 (Version None)
Quarter: 2011Q2

REPORT INFORMATION
  Report Type: 
  Country: None (occurrence: None)
  Receive Date: 20110411
  Receipt Date: 20110328
  Transmission Date: 20111010
  Serious: Yes (Death, Life-Threatening, Hospitalization, Other)
  Sender: FDA-Public Use
  Company Number: JP-CELGENEUS-087-21880-11012419

PATIENT
  Sex: Male

DRUGS (14)
  1. REVLIMID [Suspect]
     Dosage: 5 MILLIGRAM
     Route: 048
     Dates: start: 20101020, end: 20101026
  2. VALTREX [Concomitant]
     Indication: PROPHYLAXIS
     Dosage: 1000 MILLIGRAM
     Route: 048
     Dates: start: 20100922, end: 20101118
  3. REVLIMID [Suspect]
     Dosage: 10 MILLIGRAM
     Route: 048
     Dates: start: 20101109, end: 20101118
  4. LENADEX [Suspect]
     Dosage: 40 MILLIGRAM
     Route: 048
     Dates: start: 20101020, end: 20101118
  5. REVLIMID [Suspect]
     Indication: MULTIPLE MYELOMA
     Dosage: 25 MILLIGRAM
     Route: 048
     Dates: start: 20100922, end: 20101012
  6. ZYLORIC [Concomitant]
     Dosage: 100 MILLIGRAM
     Route: 048
     Dates: start: 20100922, end: 20101118
  7. FAMOSTAGINE [Concomitant]
     Dosage: 40 MILLIGRAM
     Route: 048
     Dates: start: 20100922, end: 20101118
  8. LENADEX [Suspect]
     Indication: MULTIPLE MYELOMA
     Dosage: 40 MILLIGRAM
     Route: 048
     Dates: start: 20100922
  9. REBAMIPIDE [Concomitant]
     Dosage: 200 MILLIGRAM
     Route: 048
     Dates: start: 20100922, end: 20101118
  10. REVLIMID [Suspect]
     Dosage: 10 MILLIGRAM
     Route: 048
     Dates: start: 20101027, end: 20101101
  11. BAKTAR [Concomitant]
     Indication: PROPHYLAXIS
     Dosage: 4 TABLET
     Route: 048
     Dates: start: 20100922, end: 20101118
  12. OPSO [Concomitant]
     Indication: MULTIPLE MYELOMA
     Dosage: 5 MILLIGRAM
     Route: 048
     Dates: start: 20101108, end: 20101120
  13. FENTOS TAPE [Concomitant]
     Indication: MULTIPLE MYELOMA
     Dosage: 1 MILLIGRAM
     Route: 062
     Dates: start: 20101111, end: 20101120
  14. CLARITHROMYCIN [Concomitant]
     Indication: MULTIPLE MYELOMA
     Dosage: 400 MILLIGRAM
     Route: 048
     Dates: start: 20101109, end: 20101120

REACTIONS (6)
  - RASH [None]
  - NEUTROPHIL COUNT DECREASED [None]
  - INTERSTITIAL LUNG DISEASE [None]
  - DEATH [None]
  - PLATELET COUNT DECREASED [None]
  - MELAENA [None]
